FAERS Safety Report 5538360-0 (Version None)
Quarter: 2007Q4

REPORT INFORMATION
  Report Type: 
  Country: None (occurrence: None)
  Receive Date: 20071205
  Receipt Date: 20071115
  Transmission Date: 20080405
  Serious: Yes (Death, Life-Threatening, Other)
  Sender: FDA-Public Use
  Company Number: IMP_03249_2007

PATIENT
  Age: 12 Year
  Sex: Male
  Weight: 68.0396 kg

DRUGS (20)
  1. TERBUTALINE SULFATE [Suspect]
     Indication: DRUG USE FOR UNKNOWN INDICATION
     Dates: start: 19970101, end: 19970101
  2. ALBUTEROL [Suspect]
     Indication: ASTHMA
     Dates: start: 19960901, end: 19970412
  3. PROVENTIL [Suspect]
     Indication: ASTHMA
     Dates: start: 19970401, end: 19970401
  4. SOLU-MEDROL [Suspect]
     Indication: ASTHMA
     Dates: start: 19970101, end: 19970101
  5. LASIX [Suspect]
     Indication: DRUG USE FOR UNKNOWN INDICATION
  6. FENTANYL [Suspect]
     Indication: DRUG USE FOR UNKNOWN INDICATION
  7. DIAMOX [Suspect]
     Indication: DRUG USE FOR UNKNOWN INDICATION
  8. IBUPROFEN [Suspect]
     Indication: DRUG USE FOR UNKNOWN INDICATION
  9. OXACILLIN [Concomitant]
  10. CEFTAZIDIME [Concomitant]
  11. METHYLPREDNISOLONE [Concomitant]
  12. ATROVENT [Concomitant]
  13. DOPAMINE HCL [Concomitant]
  14. EPHINEPHRINE [Concomitant]
  15. RANITIDINE HCL [Concomitant]
  16. DOBUTAMINE HCL [Concomitant]
  17. AZMACORT [Concomitant]
  18. SUCRALFATE [Concomitant]
  19. PREDNISONE [Concomitant]
  20. NASACORT [Concomitant]

REACTIONS (44)
  - ABDOMINAL SEPSIS [None]
  - ACUTE RESPIRATORY DISTRESS SYNDROME [None]
  - ASTHMA [None]
  - BLOOD CALCIUM DECREASED [None]
  - BLOOD MAGNESIUM INCREASED [None]
  - BRONCHIAL SECRETION RETENTION [None]
  - CARDIOGENIC SHOCK [None]
  - CLOSTRIDIAL INFECTION [None]
  - COLON GANGRENE [None]
  - DISSEMINATED INTRAVASCULAR COAGULATION [None]
  - DRUG INEFFECTIVE [None]
  - DUODENAL ULCER [None]
  - EROSIVE DUODENITIS [None]
  - ESCHERICHIA INFECTION [None]
  - GASTRIC HAEMORRHAGE [None]
  - GASTRIC PERFORATION [None]
  - GASTROINTESTINAL DISORDER [None]
  - GASTROINTESTINAL NECROSIS [None]
  - HEPATIC FAILURE [None]
  - HEPATIC NECROSIS [None]
  - HEPATIC STEATOSIS [None]
  - HYPOPERFUSION [None]
  - HYPOTENSION [None]
  - ILEUS PARALYTIC [None]
  - INTESTINAL ISCHAEMIA [None]
  - LACTIC ACIDOSIS [None]
  - MULTI-ORGAN FAILURE [None]
  - MULTIPLE DRUG OVERDOSE [None]
  - OXYGEN SATURATION DECREASED [None]
  - PERITONEAL HAEMORRHAGE [None]
  - PULMONARY HAEMORRHAGE [None]
  - REFUSAL OF TREATMENT BY RELATIVE [None]
  - RENAL FAILURE [None]
  - RENAL TUBULAR NECROSIS [None]
  - RESPIRATORY FAILURE [None]
  - RETROPERITONEAL HAEMORRHAGE [None]
  - RHINORRHOEA [None]
  - SEPTIC SHOCK [None]
  - SINUSITIS [None]
  - SOMNOLENCE [None]
  - THERAPEUTIC RESPONSE UNEXPECTED WITH DRUG SUBSTITUTION [None]
  - THROMBOSIS MESENTERIC VESSEL [None]
  - UPPER GASTROINTESTINAL HAEMORRHAGE [None]
  - UPPER RESPIRATORY TRACT CONGESTION [None]
